FAERS Safety Report 5909743-1 (Version None)
Quarter: 2008Q4

REPORT INFORMATION
  Report Type: 
  Country: None (occurrence: None)
  Receive Date: 20081006
  Receipt Date: 20081006
  Transmission Date: 20090506
  Serious: Yes (Other)
  Sender: FDA-Public Use
  Company Number: None

PATIENT
  Age: 50 Year
  Sex: Female

DRUGS (1)
  1. CHLOR-PHENIRAMINE, 4MG, DISTRIBUTOR MARIEX [Suspect]
     Indication: SEASONAL ALLERGY
     Dosage: ONE TABLET 4-6 TIMES DAILY ORAL
     Route: 048
     Dates: start: 20080915, end: 20080930

REACTIONS (2)
  - FEELING ABNORMAL [None]
  - PRURITUS [None]
